FAERS Safety Report 8394199 (Version 4)
Quarter: 2013Q2

REPORT INFORMATION
  Report Type: Spontaneous
  Country: GB (occurrence: GB)
  Receive Date: 20120207
  Receipt Date: 20130628
  Transmission Date: 20140414
  Serious: Yes (Death, Other)
  Sender: FDA-Public Use
  Company Number: PHFR2012GB001027

PATIENT
  Age: 43 Year
  Sex: Male

DRUGS (4)
  1. CLOZARIL [Suspect]
     Indication: SCHIZOPHRENIA
     Dosage: UNK
     Route: 048
     Dates: start: 20010701
  2. LORAZEPAM [Suspect]
     Dosage: UNK
  3. CHLORPROMAZINE [Suspect]
     Dosage: UNK
  4. CLOMIPRAMINE [Suspect]
     Dosage: UNK

REACTIONS (11)
  - Antipsychotic drug level increased [Fatal]
  - Toxicity to various agents [Fatal]
  - Arrhythmia [Fatal]
  - Agitation [Fatal]
  - Schizophrenia [Fatal]
  - Myocardial infarction [Fatal]
  - Aggression [Unknown]
  - Fall [Unknown]
  - Loss of consciousness [Unknown]
  - Unresponsive to stimuli [Unknown]
  - Malaise [Unknown]
